FAERS Safety Report 5388835-2 (Version None)
Quarter: 2007Q3

REPORT INFORMATION
  Report Type: 
  Country: None (occurrence: None)
  Receive Date: 20070716
  Receipt Date: 20070608
  Transmission Date: 20080115
  Serious: Yes (Hospitalization)
  Sender: FDA-Public Use
  Company Number: NO-SHR-NO-2007-025943

PATIENT
  Age: 84 Year
  Sex: Female

DRUGS (3)
  1. SOTALOL HYDROCHLORIDE [Suspect]
     Indication: ATRIAL FLUTTER
     Dosage: 160 MG, 2X/DAY
  2. SOTALOL HYDROCHLORIDE [Suspect]
     Dosage: 80 MG, 2X/DAY
  3. FUROSEMIDE [Concomitant]
     Indication: HYPERTENSION

REACTIONS (3)
  - DIVERTICULITIS [None]
  - DRUG TOXICITY [None]
  - VENTRICULAR ARRHYTHMIA [None]
